FAERS Safety Report 20532247 (Version 1)
Quarter: 2022Q1

REPORT INFORMATION
  Report Type: Spontaneous
  Country: US (occurrence: None)
  Receive Date: 20220301
  Receipt Date: 20220301
  Transmission Date: 20220424
  Serious: No
  Sender: FDA-Public Use
  Company Number: None

PATIENT
  Age: 87 Year
  Sex: Male
  Weight: 53 kg

DRUGS (1)
  1. LISINOPRIL [Suspect]
     Active Substance: LISINOPRIL
     Dosage: 1 TAB EVERYDAY PO
     Route: 048
     Dates: start: 20190906, end: 20220217

REACTIONS (1)
  - Angioedema [None]

NARRATIVE: CASE EVENT DATE: 20220217
